FAERS Safety Report 18291426 (Version 1)
Quarter: 2020Q3

REPORT INFORMATION
  Report Type: Spontaneous
  Country: US (occurrence: US)
  Receive Date: 20200921
  Receipt Date: 20200921
  Transmission Date: 20201103
  Serious: No
  Sender: FDA-Public Use
  Company Number: US-009507513-2009USA007049

PATIENT
  Sex: Female
  Weight: 90.25 kg

DRUGS (1)
  1. NEXPLANON [Suspect]
     Active Substance: ETONOGESTREL
     Indication: CONTRACEPTION
     Dosage: 1 EVERY 3 YEARS, INSERTED IN HER LEFT UPPER ARM
     Route: 059

REACTIONS (3)
  - No adverse event [Unknown]
  - Complication of device removal [Not Recovered/Not Resolved]
  - Complication associated with device [Not Recovered/Not Resolved]

NARRATIVE: CASE EVENT DATE: 2019
